FAERS Safety Report 7527762-9 (Version None)
Quarter: 2011Q2

REPORT INFORMATION
  Report Type: 
  Country: None (occurrence: None)
  Receive Date: 20110607
  Receipt Date: 20110531
  Transmission Date: 20111010
  Serious: Yes (Other)
  Sender: FDA-Public Use
  Company Number: GB-SANOFI-AVENTIS-2011SA034380

PATIENT
  Age: 72 Year
  Sex: Male

DRUGS (4)
  1. PLAVIX [Suspect]
     Route: 048
  2. ATORVASTATIN [Concomitant]
  3. RAMIPRIL [Concomitant]
  4. BISOPROLOL FUMARATE [Concomitant]

REACTIONS (2)
  - CONSTIPATION [None]
  - BLADDER CANCER [None]
